FAERS Safety Report 7987638-X (Version None)
Quarter: 2011Q4

REPORT INFORMATION
  Report Type: 
  Country: None (occurrence: None)
  Receive Date: 20111216
  Receipt Date: 20110106
  Transmission Date: 20120403
  Serious: Yes (Other)
  Sender: FDA-Public Use
  Company Number: US-BRISTOL-MYERS SQUIBB COMPANY-15324247

PATIENT
  Age: 41 Year
  Sex: Female
  Weight: 120 kg

DRUGS (4)
  1. NORTRIPTYLINE HCL [Concomitant]
  2. METFORMIN HCL [Concomitant]
  3. LITHIUM CARBONATE [Concomitant]
  4. ABILIFY [Suspect]
     Indication: DEPRESSION
     Dosage: STARTED ABOUT A YEAR AGO LOT NO:9F48172B EXP DATE:JUN2012 LOT NO:9J45734A EXP DATE:SEP2012
     Dates: end: 20100516

REACTIONS (3)
  - WEIGHT INCREASED [None]
  - DRUG INEFFECTIVE [None]
  - TYPE 2 DIABETES MELLITUS [None]
